FAERS Safety Report 15316665 (Version 1)
Quarter: 2018Q3

REPORT INFORMATION
  Report Type: Spontaneous
  Country: US (occurrence: US)
  Receive Date: 20180816
  Receipt Date: 20180816
  Transmission Date: 20181010
  Serious: Yes (Life-Threatening, Hospitalization)
  Sender: FDA-Public Use
  Company Number: None

PATIENT
  Age: 83 Year
  Sex: Male

DRUGS (1)
  1. WAFARIN [Suspect]
     Active Substance: WARFARIN

REACTIONS (9)
  - Pneumonia aspiration [None]
  - Brain midline shift [None]
  - Respiratory distress [None]
  - Lethargy [None]
  - Depressed level of consciousness [None]
  - Atrial fibrillation [None]
  - Subdural haematoma [None]
  - Acute myocardial infarction [None]
  - General physical health deterioration [None]

NARRATIVE: CASE EVENT DATE: 20170630
